FAERS Safety Report 9454498 (Version 2)
Quarter: 2013Q3

REPORT INFORMATION
  Report Type: Spontaneous
  Country: US (occurrence: US)
  Receive Date: 20130812
  Receipt Date: 20130827
  Transmission Date: 20140515
  Serious: Yes (Other)
  Sender: FDA-Public Use
  Company Number: US-GLAXOSMITHKLINE-A1035052A

PATIENT
  Age: 55 Year
  Sex: Male

DRUGS (5)
  1. ADVAIR [Suspect]
     Dosage: 1PUFF TWICE PER DAY
     Route: 055
     Dates: start: 201212
  2. SINGULAIR [Concomitant]
  3. AVELOX [Concomitant]
  4. PRO-AIR [Concomitant]
  5. PREDNISONE [Concomitant]

REACTIONS (2)
  - Drug ineffective [Recovered/Resolved]
  - Product quality issue [Recovered/Resolved]
